FAERS Safety Report 12482673 (Version 2)
Quarter: 2016Q3

REPORT INFORMATION
  Report Type: Spontaneous
  Country: US (occurrence: US)
  Receive Date: 20160620
  Receipt Date: 20160729
  Transmission Date: 20161109
  Serious: No
  Sender: FDA-Public Use
  Company Number: US-BIOMARINAP-US-2016-110189

PATIENT
  Sex: Female
  Weight: 38 kg

DRUGS (1)
  1. ALDURAZYME [Suspect]
     Active Substance: LARONIDASE
     Indication: MUCOPOLYSACCHARIDOSIS I
     Dosage: 0.57 MG/KG, QOW
     Route: 041
     Dates: start: 20150910

REACTIONS (5)
  - Lethargy [Unknown]
  - Anaemia [Unknown]
  - Chest pain [Recovered/Resolved]
  - Product use issue [Unknown]
  - Dizziness [Not Recovered/Not Resolved]
